FAERS Safety Report 4512907-5 (Version None)
Quarter: 2004Q4

REPORT INFORMATION
  Report Type: 
  Country: None (occurrence: None)
  Receive Date: 20041130
  Receipt Date: 20041123
  Transmission Date: 20050328
  Serious: Yes (Life-Threatening)
  Sender: FDA-Public Use
  Company Number: FR-NOVOPROD-240711

PATIENT
  Age: 53 Year
  Sex: Male
  Weight: 50 kg

DRUGS (1)
  1. NOVOSEVEN [Suspect]
     Indication: UPPER GASTROINTESTINAL HAEMORRHAGE
     Dosage: 300 UG/KG, 5 DOSES
     Route: 042
     Dates: start: 20041122, end: 20041123

REACTIONS (4)
  - COMA [None]
  - DISEASE RECURRENCE [None]
  - EPILEPSY [None]
  - UPPER GASTROINTESTINAL HAEMORRHAGE [None]
